FAERS Safety Report 9154470 (Version 1)
Quarter: 2013Q1

REPORT INFORMATION
  Report Type: Spontaneous
  Country: US (occurrence: None)
  Receive Date: 20130306
  Receipt Date: 20130306
  Transmission Date: 20140127
  Serious: Yes (Hospitalization)
  Sender: FDA-Public Use
  Company Number: None

PATIENT
  Age: 61 Year
  Sex: Female
  Weight: 45.44 kg

DRUGS (1)
  1. METRONIDAZOLE [Suspect]

REACTIONS (1)
  - Pancreatitis acute [None]
